FAERS Safety Report 5920447-1 (Version None)
Quarter: 2008Q4

REPORT INFORMATION
  Report Type: 
  Country: None (occurrence: None)
  Receive Date: 20081016
  Receipt Date: 20081013
  Transmission Date: 20090506
  Serious: Yes (Death)
  Sender: FDA-Public Use
  Company Number: AU-ASTRAZENECA-2008AP07876

PATIENT

DRUGS (2)
  1. SEROQUEL [Suspect]
     Route: 048
  2. ANTIPSYCHOTICS [Concomitant]

REACTIONS (2)
  - DEATH [None]
  - MASKED FACIES [None]
